APPROVED DRUG PRODUCT: CLORAZEPATE DIPOTASSIUM
Active Ingredient: CLORAZEPATE DIPOTASSIUM
Strength: 3.75MG
Dosage Form/Route: CAPSULE;ORAL
Application: A071549 | Product #001
Applicant: QUANTUM PHARMICS LTD
Approved: Sep 12, 1988 | RLD: No | RS: No | Type: DISCN